FAERS Safety Report 22011496 (Version 5)
Quarter: 2023Q4

REPORT INFORMATION
  Report Type: Report from Study
  Country: US (occurrence: US)
  Receive Date: 20230220
  Receipt Date: 20231103
  Transmission Date: 20240109
  Serious: Yes (Hospitalization, Other)
  Sender: FDA-Public Use
  Company Number: US-AURINIA PHARMACEUTICALS INC.-AUR-002869

PATIENT
  Age: 48 Year
  Sex: Female
  Weight: 82.358 kg

DRUGS (3)
  1. LUPKYNIS [Suspect]
     Active Substance: VOCLOSPORIN
     Indication: Lupus nephritis
     Dosage: 23.7 MILLIGRAM, BID
     Route: 048
     Dates: start: 20221108, end: 20230525
  2. CELLCEPT [Suspect]
     Active Substance: MYCOPHENOLATE MOFETIL
     Indication: Lupus nephritis
     Dosage: 1.5 GRAM, BID
  3. PREDNISONE [Concomitant]
     Active Substance: PREDNISONE
     Indication: Lupus nephritis
     Dosage: 10 MILLIGRAM, QD

REACTIONS (24)
  - Disseminated mycobacterium avium complex infection [Not Recovered/Not Resolved]
  - Cytomegalovirus infection [Recovering/Resolving]
  - Intestinal ulcer [Recovering/Resolving]
  - Gastric ulcer [Recovering/Resolving]
  - Coccidioidomycosis [Unknown]
  - Systemic lupus erythematosus [Not Recovered/Not Resolved]
  - Gastrointestinal haemorrhage [Recovered/Resolved]
  - Acute kidney injury [Recovering/Resolving]
  - Pneumonia [Unknown]
  - Sepsis [Recovered/Resolved]
  - Deep vein thrombosis [Unknown]
  - Thrombocytopenia [Unknown]
  - Renal impairment [Recovering/Resolving]
  - Leukopenia [Unknown]
  - Presyncope [Unknown]
  - Anaemia [Unknown]
  - Bronchitis [Unknown]
  - Rib fracture [Recovered/Resolved]
  - Upper respiratory tract infection [Not Recovered/Not Resolved]
  - Pulmonary mass [Unknown]
  - Rash maculo-papular [Recovering/Resolving]
  - Hypertension [Unknown]
  - Treatment noncompliance [Unknown]
  - Therapy interrupted [Unknown]

NARRATIVE: CASE EVENT DATE: 20230321
